FAERS Safety Report 15711256 (Version 2)
Quarter: 2019Q1

REPORT INFORMATION
  Report Type: Report from Study
  Country: US (occurrence: US)
  Receive Date: 20181211
  Receipt Date: 20190108
  Transmission Date: 20190417
  Serious: Yes (Hospitalization)
  Sender: FDA-Public Use
  Company Number: PHEH2018US052024

PATIENT
  Sex: Female
  Weight: 169.62 kg

DRUGS (1)
  1. COSENTYX [Suspect]
     Active Substance: SECUKINUMAB
     Indication: PSORIATIC ARTHROPATHY
     Dosage: 150 MG, QMO
     Route: 058
     Dates: start: 20170929

REACTIONS (6)
  - Fall [Unknown]
  - Contusion [Unknown]
  - Joint injury [Unknown]
  - Road traffic accident [Unknown]
  - Limb injury [Unknown]
  - Joint swelling [Unknown]
